FAERS Safety Report 6533327-8 (Version None)
Quarter: 2010Q1

REPORT INFORMATION
  Report Type: 
  Country: None (occurrence: None)
  Receive Date: 20100111
  Receipt Date: 20100107
  Transmission Date: 20100710
  Serious: Yes (Other)
  Sender: FDA-Public Use
  Company Number: A0838326A

PATIENT
  Sex: Female

DRUGS (6)
  1. VERAMYST [Suspect]
     Indication: SINUSITIS
     Dosage: 2SPR PER DAY
     Route: 045
     Dates: start: 20091001, end: 20100107
  2. VALTREX [Concomitant]
  3. REQUIP [Concomitant]
  4. CALCIUM WITH VITAMIN D [Concomitant]
  5. VITAMIN D [Concomitant]
  6. GINGKO [Concomitant]

REACTIONS (7)
  - BLOOD PRESSURE INCREASED [None]
  - HEADACHE [None]
  - NASAL ULCER [None]
  - PHARYNGEAL INFLAMMATION [None]
  - PRODUCTIVE COUGH [None]
  - PRURITUS [None]
  - RHINORRHOEA [None]
